FAERS Safety Report 17530597 (Version 1)
Quarter: 2020Q1

REPORT INFORMATION
  Report Type: Spontaneous
  Country: SA (occurrence: SA)
  Receive Date: 20200311
  Receipt Date: 20200311
  Transmission Date: 20200409
  Serious: Yes (Hospitalization, Other)
  Sender: FDA-Public Use
  Company Number: SA-ABBVIE-20K-259-3310907-00

PATIENT
  Age: 27 Week
  Sex: Female

DRUGS (1)
  1. SURVANTA [Suspect]
     Active Substance: BERACTANT
     Indication: PRODUCT USED FOR UNKNOWN INDICATION
     Dosage: 4 ML/KG
     Route: 039

REACTIONS (4)
  - Respiratory distress [Unknown]
  - Tachypnoea [Unknown]
  - Pneumonia aspiration [Unknown]
  - Use of accessory respiratory muscles [Unknown]
